FAERS Safety Report 8346954-2 (Version None)
Quarter: 2012Q2

REPORT INFORMATION
  Report Type: 
  Country: None (occurrence: None)
  Receive Date: 20120507
  Receipt Date: 20120507
  Transmission Date: 20120825
  Serious: Yes (Life-Threatening, Hospitalization)
  Sender: FDA-Public Use
  Company Number: None

PATIENT
  Age: 70 Year
  Sex: Male
  Weight: 127.3 kg

DRUGS (1)
  1. CARBOPLATIN [Suspect]
     Indication: NEOPLASM MALIGNANT
     Dosage: 500 MG ONCE IV;  150 MG ONCE IV
     Route: 042
     Dates: start: 20111215, end: 20120329

REACTIONS (5)
  - DYSPNOEA [None]
  - ANAEMIA [None]
  - NEUTROPENIA [None]
  - ASTHENIA [None]
  - PYREXIA [None]
